FAERS Safety Report 4661090-4 (Version None)
Quarter: 2005Q2

REPORT INFORMATION
  Report Type: 
  Country: None (occurrence: None)
  Receive Date: 20050511
  Receipt Date: 20050502
  Transmission Date: 20051028
  Serious: Yes (Hospitalization)
  Sender: FDA-Public Use
  Company Number: 2005069872

PATIENT
  Age: 16 Year
  Sex: Male

DRUGS (4)
  1. METHYLPREDNISOLONE [Suspect]
     Indication: PHARYNGITIS
     Dosage: 16 MG (1 IN 2 D), ORAL
     Route: 048
     Dates: start: 20050211, end: 20050212
  2. TELITHROMYCIN [Suspect]
     Indication: PHARYNGITIS
     Dosage: 400 MG (1 IN 2 D), ORAL
     Route: 048
     Dates: start: 20050211, end: 20050211
  3. BETAMETHASONE SODIUM PHOSPHATE [Suspect]
     Indication: PHARYNGITIS
     Dosage: INHALATION
     Route: 055
     Dates: start: 20050211, end: 20050212
  4. LINCOMYCIN HYDROCHLORIDE MONOHYDRATE [Suspect]
     Indication: ILL-DEFINED DISORDER
     Dosage: 600 (1 IN 1 D), INHALATION
     Route: 055
     Dates: start: 20050211, end: 20050212

REACTIONS (3)
  - ASTHENIA [None]
  - BLOOD CREATINE PHOSPHOKINASE INCREASED [None]
  - HYPOKALAEMIA [None]
